FAERS Safety Report 20157505 (Version 1)
Quarter: 2021Q4

REPORT INFORMATION
  Report Type: Spontaneous
  Country: US (occurrence: US)
  Receive Date: 20211207
  Receipt Date: 20211207
  Transmission Date: 20220303
  Serious: No
  Sender: FDA-Public Use
  Company Number: US-IBSA PHARMA INC.-2021IBS000112

PATIENT

DRUGS (1)
  1. TIROSINT [Suspect]
     Active Substance: LEVOTHYROXINE SODIUM
     Indication: Product used for unknown indication
     Dosage: 112 ?G, UNK

REACTIONS (3)
  - Constipation [Unknown]
  - Osteoporosis [Unknown]
  - Expired product administered [Unknown]

NARRATIVE: CASE EVENT DATE: 20200101
